FAERS Safety Report 6211415-3 (Version None)
Quarter: 2009Q2

REPORT INFORMATION
  Report Type: 
  Country: None (occurrence: None)
  Receive Date: 20090602
  Receipt Date: 20090525
  Transmission Date: 20091009
  Serious: Yes (Death, Hospitalization)
  Sender: FDA-Public Use
  Company Number: CA-ELI_LILLY_AND_COMPANY-CA200905005034

PATIENT
  Age: 85 Year
  Sex: Female

DRUGS (14)
  1. FORTEO [Suspect]
     Indication: OSTEOPOROSIS
     Dosage: 20 UG, DAILY (1/D)
     Route: 058
     Dates: start: 20090118
  2. FOLIC ACID [Concomitant]
  3. SYNTHROID [Concomitant]
  4. CRANBERRY [Concomitant]
  5. CITALOPRAM HYDROBROMIDE [Concomitant]
  6. ALTACE [Concomitant]
  7. ASCORBIC ACID [Concomitant]
  8. VITAMIN E [Concomitant]
  9. VITALUX [Concomitant]
  10. ASPIRIN [Concomitant]
  11. RABEPRAZOLE SODIUM [Concomitant]
  12. SENOKOT [Concomitant]
  13. CALCIUM [Concomitant]
  14. FERROUS GLUCONATE [Concomitant]

REACTIONS (3)
  - DEATH [None]
  - FALL [None]
  - RIB FRACTURE [None]
